FAERS Safety Report 24740203 (Version 1)
Quarter: 2024Q4

REPORT INFORMATION
  Report Type: Spontaneous
  Country: JP (occurrence: JP)
  Receive Date: 20241216
  Receipt Date: 20241216
  Transmission Date: 20250115
  Serious: Yes (Other)
  Sender: JOHNSON AND JOHNSON
  Company Number: JP-JNJFOC-20241215451

PATIENT
  Age: 11 Year
  Sex: Female

DRUGS (13)
  1. OPSUMIT [Suspect]
     Active Substance: MACITENTAN
     Indication: Pulmonary arterial hypertension
     Dosage: DOSE UNKNOWN, INCREASED
     Route: 048
  2. OPSUMIT [Suspect]
     Active Substance: MACITENTAN
     Route: 048
  3. EPOPROSTENOL [Suspect]
     Active Substance: EPOPROSTENOL
     Indication: Pulmonary arterial hypertension
     Dosage: DOSE UNKNOWN, INCREASED
     Route: 041
  4. EPOPROSTENOL [Suspect]
     Active Substance: EPOPROSTENOL
     Route: 041
  5. EPOPROSTENOL [Suspect]
     Active Substance: EPOPROSTENOL
     Route: 041
  6. EPOPROSTENOL [Suspect]
     Active Substance: EPOPROSTENOL
     Route: 041
  7. EPOPROSTENOL [Suspect]
     Active Substance: EPOPROSTENOL
     Route: 041
  8. EPOPROSTENOL [Suspect]
     Active Substance: EPOPROSTENOL
     Route: 041
  9. UPTRAVI [Concomitant]
     Active Substance: SELEXIPAG
     Indication: Pulmonary arterial hypertension
     Dosage: DOSE UNKNOWN, INCREASED
     Route: 048
  10. UPTRAVI [Concomitant]
     Active Substance: SELEXIPAG
     Route: 048
  11. RIOCIGUAT [Concomitant]
     Active Substance: RIOCIGUAT
     Indication: Pulmonary arterial hypertension
     Dosage: DOSE UNKNOWN, INCREASED
     Route: 048
  12. RIOCIGUAT [Concomitant]
     Active Substance: RIOCIGUAT
     Route: 048
  13. DOBUTAMINE HYDROCHLORIDE [Concomitant]
     Active Substance: DOBUTAMINE HYDROCHLORIDE
     Indication: Product used for unknown indication
     Dosage: DOSE UNKNOWN
     Route: 065

REACTIONS (3)
  - Pulmonary hypertension [Recovering/Resolving]
  - Pneumonia [Unknown]
  - Off label use [Unknown]
